FAERS Safety Report 6608597-8 (Version None)
Quarter: 2010Q1

REPORT INFORMATION
  Report Type: 
  Country: None (occurrence: None)
  Receive Date: 20100301
  Receipt Date: 20100219
  Transmission Date: 20100710
  Serious: Yes (Other)
  Sender: FDA-Public Use
  Company Number: GXKR2010US02094

PATIENT
  Age: 43 Year
  Sex: Male

DRUGS (6)
  1. MYCOPHENOLATE MOFETIL (NGX) [Suspect]
     Route: 065
  2. CYCLOSPORINE [Suspect]
     Route: 065
  3. PREDNISONE TAB [Suspect]
     Route: 065
  4. CO-TRIMOXAZOLE (NGX) [Suspect]
     Route: 065
  5. VORICONAZOLE [Suspect]
     Dosage: 200 MG, BID
     Route: 065
  6. SIROLIMUS [Suspect]
     Route: 065

REACTIONS (5)
  - ERYTHEMA [None]
  - PHOTODERMATOSIS [None]
  - PHOTOSENSITIVITY REACTION [None]
  - SQUAMOUS CELL CARCINOMA [None]
  - TELANGIECTASIA [None]
